FAERS Safety Report 5706784-4 (Version None)
Quarter: 2008Q2

REPORT INFORMATION
  Report Type: 
  Country: None (occurrence: None)
  Receive Date: 20080415
  Receipt Date: 20080415
  Transmission Date: 20081010
  Serious: Yes (Other)
  Sender: FDA-Public Use
  Company Number: None

PATIENT
  Sex: Male
  Weight: 102.0593 kg

DRUGS (1)
  1. LISINOPRIL 40 MG LUPIN LIMITED [Suspect]
     Indication: HYPERTENSION
     Dosage: 40 MG ONCE DAILY PO
     Route: 048
     Dates: start: 20080328, end: 20080411

REACTIONS (2)
  - BLOOD GLUCOSE INCREASED [None]
  - PHARMACEUTICAL PRODUCT COMPLAINT [None]
